FAERS Safety Report 10258003 (Version 1)
Quarter: 2014Q2

REPORT INFORMATION
  Report Type: Spontaneous
  Country: US (occurrence: US)
  Receive Date: 20140625
  Receipt Date: 20140625
  Transmission Date: 20141212
  Serious: No
  Sender: FDA-Public Use
  Company Number: US-PFIZER INC-2014173985

PATIENT
  Sex: Male

DRUGS (1)
  1. XELJANZ [Suspect]
     Indication: ALOPECIA UNIVERSALIS
     Dosage: UNK

REACTIONS (2)
  - Off label use [Unknown]
  - Hair growth abnormal [Unknown]
